FAERS Safety Report 7893483-6 (Version None)
Quarter: 2011Q4

REPORT INFORMATION
  Report Type: 
  Country: None (occurrence: None)
  Receive Date: 20111104
  Receipt Date: 20111028
  Transmission Date: 20120403
  Serious: Yes (Death)
  Sender: FDA-Public Use
  Company Number: PT-B.I. PHARMACEUTICALS,INC./RIDGEFIELD-2011-EU-00003PO

PATIENT
  Age: 68 Year
  Sex: Female

DRUGS (1)
  1. PRADAXA [Suspect]
     Indication: HIP ARTHROPLASTY
     Dosage: 220 MG
     Route: 048

REACTIONS (5)
  - ANURIA [None]
  - PYREXIA [None]
  - RENAL TUBULAR NECROSIS [None]
  - WOUND SECRETION [None]
  - ACUTE PULMONARY OEDEMA [None]
